FAERS Safety Report 18137773 (Version 8)
Quarter: 2024Q1

REPORT INFORMATION
  Report Type: Report from Study
  Country: JP (occurrence: JP)
  Receive Date: 20200811
  Receipt Date: 20240106
  Transmission Date: 20240410
  Serious: Yes (Hospitalization, Other)
  Sender: FDA-Public Use
  Company Number: JP-CELLTRION INC.-2020JP025010

PATIENT

DRUGS (11)
  1. INFLIXIMAB-DYYB [Suspect]
     Active Substance: INFLIXIMAB-DYYB
     Indication: Crohn^s disease
     Dosage: 335 MG (WEIGHT: 67 KG)
     Route: 041
     Dates: start: 20181028, end: 20181028
  2. INFLIXIMAB-DYYB [Suspect]
     Active Substance: INFLIXIMAB-DYYB
     Dosage: 330 MG (WEIGHT: 66 KG)
     Route: 041
     Dates: start: 20190921, end: 20190921
  3. INFLIXIMAB-DYYB [Suspect]
     Active Substance: INFLIXIMAB-DYYB
     Dosage: 300 MG (WEIGHT: 60 KG)
     Route: 041
     Dates: start: 20201004, end: 20201004
  4. INFLIXIMAB-DYYB [Suspect]
     Active Substance: INFLIXIMAB-DYYB
     Dosage: 340 MG (WEIGHT: 68 KG)
     Route: 041
     Dates: start: 20181222, end: 20181222
  5. INFLIXIMAB-DYYB [Suspect]
     Active Substance: INFLIXIMAB-DYYB
     Dosage: 335 MG (WEIGHT: 67 KG)
     Route: 041
     Dates: start: 20190209, end: 20190209
  6. INFLIXIMAB-DYYB [Suspect]
     Active Substance: INFLIXIMAB-DYYB
     Dosage: 335 MG (WEIGHT: 67 KG)
     Route: 041
     Dates: start: 20190406, end: 20190406
  7. INFLIXIMAB-DYYB [Suspect]
     Active Substance: INFLIXIMAB-DYYB
     Dosage: 310 MG (WEIGHT: 62.2KG)
     Route: 041
     Dates: start: 20211106, end: 20211106
  8. INFLIXIMAB-DYYB [Suspect]
     Active Substance: INFLIXIMAB-DYYB
     Dosage: 610 MG (WEIGHT: 61KG)
     Route: 041
     Dates: start: 20221001, end: 20221001
  9. INFLIXIMAB-DYYB [Suspect]
     Active Substance: INFLIXIMAB-DYYB
     Dosage: 680 MG (WEIGHT: 68.2KG)
     Route: 041
     Dates: start: 20231104, end: 20231104
  10. MESALAMINE [Concomitant]
     Active Substance: MESALAMINE
     Dosage: 3000 MILLIGRAM/DAY
     Route: 048
  11. AZATHIOPRINE [Concomitant]
     Active Substance: AZATHIOPRINE
     Dosage: 50 MILLIGRAM/DAY (END DATE: 13-DEC-2019)
     Route: 048

REACTIONS (12)
  - Herpes zoster [Recovered/Resolved]
  - Small intestinal stenosis [Recovered/Resolved]
  - Nephrolithiasis [Recovered/Resolved]
  - Peritonitis [Recovered/Resolved]
  - Subcutaneous abscess [Recovered/Resolved]
  - Calculus urinary [Not Recovered/Not Resolved]
  - Seasonal allergy [Not Recovered/Not Resolved]
  - Seasonal allergy [Recovered/Resolved]
  - Seasonal allergy [Recovered/Resolved]
  - Nasopharyngitis [Recovered/Resolved]
  - Intentional product use issue [Unknown]
  - Overdose [Unknown]

NARRATIVE: CASE EVENT DATE: 20190226
